FAERS Safety Report 15530646 (Version 2)
Quarter: 2018Q4

REPORT INFORMATION
  Report Type: Spontaneous
  Country: US (occurrence: US)
  Receive Date: 20181018
  Receipt Date: 20181025
  Transmission Date: 20190205
  Serious: Yes (Other)
  Sender: FDA-Public Use
  Company Number: US-FRESENIUS KABI-FK201810750

PATIENT
  Age: 29 Year
  Sex: Female
  Weight: 60 kg

DRUGS (2)
  1. HEPARIN SODIUM INJECTION, USP [Suspect]
     Active Substance: HEPARIN SODIUM
     Indication: THROMBOSIS PROPHYLAXIS
     Dosage: 11 DOSES RECEIVED. ON 25SEP2018 AT 1447, THE LAST DOSE ADMINISTERED.
     Route: 058
     Dates: start: 20180922, end: 20180925
  2. HEPARIN SODIUM INJECTION, USP [Suspect]
     Active Substance: HEPARIN SODIUM
     Indication: THROMBOSIS PROPHYLAXIS
     Dosage: 11 DOSES RECEIVED. ON 25SEP2018 AT 1447, THE LAST DOSE ADMINISTERED.
     Route: 058
     Dates: start: 20180922, end: 20180925

REACTIONS (2)
  - Drug effect increased [Recovered/Resolved]
  - Haemorrhage [Unknown]

NARRATIVE: CASE EVENT DATE: 20180925
